FAERS Safety Report 9910701 (Version 2)
Quarter: 2014Q1

REPORT INFORMATION
  Report Type: Spontaneous
  Country: US (occurrence: US)
  Receive Date: 20140219
  Receipt Date: 20140219
  Transmission Date: 20141002
  Serious: No
  Sender: FDA-Public Use
  Company Number: US-GILEAD-2012-0052062

PATIENT
  Age: 54 Year
  Sex: Female

DRUGS (9)
  1. LETAIRIS [Suspect]
     Indication: PULMONARY HYPERTENSION
     Dosage: 5 MG, UNK
     Route: 048
     Dates: start: 20120307, end: 20120326
  2. LETAIRIS [Suspect]
     Indication: CARDIAC VALVE DISEASE
  3. DILTIAZEM [Concomitant]
  4. KCL [Concomitant]
  5. BISOPROLOL [Concomitant]
  6. NEXIUM                             /01479302/ [Concomitant]
  7. SPIRONOLACTONE [Concomitant]
  8. FOLIC ACID [Concomitant]
  9. WARFARIN [Concomitant]

REACTIONS (8)
  - Epistaxis [Unknown]
  - Chest discomfort [Unknown]
  - Cough [Unknown]
  - Feeling abnormal [Unknown]
  - Dyspnoea [Unknown]
  - Flushing [Unknown]
  - Rash [Unknown]
  - Local swelling [Unknown]
